FAERS Safety Report 15085269 (Version 1)
Quarter: 2018Q2

REPORT INFORMATION
  Report Type: Spontaneous
  Country: US (occurrence: US)
  Receive Date: 20180628
  Receipt Date: 20180628
  Transmission Date: 20180711
  Serious: Yes (Hospitalization, Other)
  Sender: FDA-Public Use
  Company Number: US-SHIRE-US201822345

PATIENT
  Age: 2 Year
  Sex: Female
  Weight: 10 kg

DRUGS (16)
  1. VENETOCLAX. [Suspect]
     Active Substance: VENETOCLAX
     Dosage: 35 MG, 1X/DAY:QD
     Route: 048
     Dates: start: 20180225, end: 20180225
  2. ALLOPURINOL. [Concomitant]
     Active Substance: ALLOPURINOL
     Indication: PROPHYLAXIS
  3. VENETOCLAX. [Suspect]
     Active Substance: VENETOCLAX
     Dosage: 150 MG, 1X/DAY:QD
     Route: 048
     Dates: start: 20180226, end: 20180319
  4. PEGASPARGASE [Suspect]
     Active Substance: PEGASPARGASE
     Indication: NEOPLASM MALIGNANT
     Dosage: 2500 IU, 1X/2WKS
     Route: 042
     Dates: start: 20180303, end: 20180303
  5. VENETOCLAX. [Suspect]
     Active Substance: VENETOCLAX
     Dosage: 150 MG, 1X/DAY:QD
     Route: 048
     Dates: start: 20180322
  6. BORTEZOMIB [Concomitant]
     Active Substance: BORTEZOMIB
     Indication: ACUTE LYMPHOCYTIC LEUKAEMIA
  7. PEGASPARGASE [Suspect]
     Active Substance: PEGASPARGASE
     Indication: ACUTE LYMPHOCYTIC LEUKAEMIA
  8. VENETOCLAX. [Suspect]
     Active Substance: VENETOCLAX
     Indication: NEOPLASM MALIGNANT
     Dosage: 40 MG, 1X/DAY:QD
     Route: 048
     Dates: start: 20180224, end: 20180224
  9. VINCRISTINE [Suspect]
     Active Substance: VINCRISTINE
     Indication: NEOPLASM MALIGNANT
     Dosage: 2 MG/M2, 1X/WEEK
     Route: 042
     Dates: start: 20180303, end: 20180310
  10. CYTARABINE. [Suspect]
     Active Substance: CYTARABINE
     Indication: NEOPLASM MALIGNANT
     Dosage: 50 MG/M2, UNK (COMBINATION WITH METHOTREXATE)
     Route: 042
     Dates: start: 20180316
  11. VANCOMYCIN [Concomitant]
     Active Substance: VANCOMYCIN
     Indication: FEBRILE NEUTROPENIA
     Dosage: 640 MG, 1X/DAY:QD
     Dates: start: 20180312
  12. VORINOSTAT [Concomitant]
     Active Substance: VORINOSTAT
     Indication: ACUTE LYMPHOCYTIC LEUKAEMIA
  13. METHOTREXATE. [Concomitant]
     Active Substance: METHOTREXATE
     Indication: ACUTE LYMPHOCYTIC LEUKAEMIA
  14. SALINE [Concomitant]
     Active Substance: SODIUM CHLORIDE
     Indication: PROPHYLAXIS
     Dosage: UNK
  15. MITOXANTRONE [Concomitant]
     Active Substance: MITOXANTRONE HYDROCHLORIDE
     Indication: ACUTE LYMPHOCYTIC LEUKAEMIA
  16. PEG-L-ASPARAGINASE [Concomitant]
     Active Substance: PEGASPARGASE
     Indication: ACUTE LYMPHOCYTIC LEUKAEMIA

REACTIONS (1)
  - Febrile neutropenia [Recovered/Resolved]

NARRATIVE: CASE EVENT DATE: 20180319
